FAERS Safety Report 8274471-7 (Version None)
Quarter: 2012Q2

REPORT INFORMATION
  Report Type: 
  Country: None (occurrence: None)
  Receive Date: 20120411
  Receipt Date: 20120405
  Transmission Date: 20120825
  Serious: Yes (Other)
  Sender: FDA-Public Use
  Company Number: GB-TEVA-331908ISR

PATIENT
  Age: 48 Year
  Sex: Female
  Weight: 54 kg

DRUGS (7)
  1. CANDESARTAN CILEXETIL [Concomitant]
     Dates: start: 20120116, end: 20120213
  2. OTOMIZE [Concomitant]
     Dates: start: 20120201, end: 20120229
  3. FELODIPINE [Concomitant]
     Dates: start: 20120116, end: 20120213
  4. ESTRADIOL [Concomitant]
     Dates: start: 20111206, end: 20120103
  5. LOSARTAN POTASSIUM [Suspect]
     Dates: start: 20120126
  6. NORINYL 1+35 28-DAY [Concomitant]
     Dates: start: 20120201
  7. FELODIPINE [Concomitant]
     Dates: start: 20120224, end: 20120323

REACTIONS (1)
  - SPIDER NAEVUS [None]
